FAERS Safety Report 10068418 (Version 1)
Quarter: 2014Q2

REPORT INFORMATION
  Report Type: Spontaneous
  Country: CO (occurrence: CO)
  Receive Date: 20140409
  Receipt Date: 20140409
  Transmission Date: 20141212
  Serious: Yes (Other)
  Sender: FDA-Public Use
  Company Number: CO-ALLERGAN-1406742US

PATIENT
  Age: 40 Year
  Sex: Male

DRUGS (2)
  1. LASTACAFT [Suspect]
     Indication: CONJUNCTIVITIS ALLERGIC
     Dosage: UNK, QD
     Route: 047
     Dates: start: 20140217, end: 20140220
  2. UROCUAD [Concomitant]
     Dosage: UNK
     Route: 047

REACTIONS (6)
  - Conjunctival disorder [Recovered/Resolved]
  - Keratitis [Recovered/Resolved]
  - Conjunctival oedema [Recovered/Resolved]
  - Conjunctival follicles [Recovered/Resolved]
  - Hypersensitivity [Recovered/Resolved]
  - Conjunctival hyperaemia [Recovered/Resolved]
